FAERS Safety Report 16710270 (Version 1)
Quarter: 2019Q3

REPORT INFORMATION
  Report Type: Spontaneous
  Country: US (occurrence: US)
  Receive Date: 20190816
  Receipt Date: 20190816
  Transmission Date: 20191004
  Serious: No
  Sender: FDA-Public Use
  Company Number: US-009507513-1908USA005767

PATIENT
  Age: 20 Year
  Sex: Female
  Weight: 49.9 kg

DRUGS (1)
  1. NEXPLANON [Suspect]
     Active Substance: ETONOGESTREL
     Indication: CONTRACEPTION
     Dosage: 1 IMPLANT ON THE LEFT ARM
     Route: 059
     Dates: start: 201901

REACTIONS (4)
  - Hot flush [Not Recovered/Not Resolved]
  - Menorrhagia [Not Recovered/Not Resolved]
  - Implant site pain [Not Recovered/Not Resolved]
  - Migraine [Not Recovered/Not Resolved]

NARRATIVE: CASE EVENT DATE: 201901
